FAERS Safety Report 9368533 (Version 1)
Quarter: 2013Q2

REPORT INFORMATION
  Report Type: Spontaneous
  Country: CH (occurrence: CH)
  Receive Date: 20130625
  Receipt Date: 20130625
  Transmission Date: 20140414
  Serious: Yes (Hospitalization)
  Sender: FDA-Public Use
  Company Number: CH-BRISTOL-MYERS SQUIBB COMPANY-19018993

PATIENT
  Age: 89 Year
  Sex: Female

DRUGS (5)
  1. COUMADIN [Suspect]
     Indication: ANTICOAGULANT THERAPY
     Dates: end: 20130508
  2. BARNIDIPINE HCL [Interacting]
  3. LANSOPRAZOLE [Interacting]
  4. XERISTAR [Suspect]
  5. MONOKET [Concomitant]

REACTIONS (5)
  - Colitis [Unknown]
  - Gastrointestinal haemorrhage [Recovered/Resolved]
  - General physical health deterioration [Unknown]
  - International normalised ratio increased [Unknown]
  - Drug interaction [Unknown]
